FAERS Safety Report 8901156 (Version 2)
Quarter: 2012Q4

REPORT INFORMATION
  Report Type: 
  Country: US (occurrence: US)
  Receive Date: 20121109
  Receipt Date: 20121220
  Transmission Date: 20130627
  Serious: Yes (Other)
  Sender: FDA-Public Use
  Company Number: US-NAPPMUNDI-USA-2012-0095374

PATIENT
  Age: 57 Year
  Sex: Female

DRUGS (13)
  1. BUTRANS [Suspect]
     Indication: PAIN
     Dosage: 20 mcg/hr, UNK
     Route: 062
     Dates: start: 20120917
  2. BUTRANS [Suspect]
     Dosage: 10 mcg/hr, UNK
     Route: 062
     Dates: start: 201207, end: 20120917
  3. BUTRANS [Suspect]
     Dosage: 5 mcg/hr, UNK
     Route: 062
     Dates: start: 201207, end: 201207
  4. CRESTOR [Concomitant]
     Indication: PRODUCT USED FOR UNKNOWN INDICATION
     Route: 048
  5. NEURONTIN [Concomitant]
     Indication: PRODUCT USED FOR UNKNOWN INDICATION
     Dosage: 100 mg, UNK
     Route: 048
  6. ASPIRIN [Concomitant]
     Indication: PRODUCT USED FOR UNKNOWN INDICATION
     Route: 048
  7. VITAMIN B NOS [Concomitant]
     Indication: VITAMIN SUPPLEMENTATION
     Route: 048
  8. CALCIUM [Concomitant]
     Indication: VITAMIN SUPPLEMENTATION
     Route: 048
  9. MAGNESIUM [Concomitant]
     Indication: VITAMIN SUPPLEMENTATION
     Route: 048
  10. ZINC [Concomitant]
     Indication: VITAMIN SUPPLEMENTATION
  11. RIFAMPIN [Concomitant]
     Indication: PRODUCT USED FOR UNKNOWN INDICATION
     Route: 048
  12. ETHAMBUTOL [Concomitant]
     Indication: PRODUCT USED FOR UNKNOWN INDICATION
     Route: 048
  13. ZITHROMYCIN [Concomitant]
     Indication: PRODUCT USED FOR UNKNOWN INDICATION
     Route: 048

REACTIONS (1)
  - Toxic encephalopathy [Unknown]
